FAERS Safety Report 6520644-0 (Version None)
Quarter: 2009Q4

REPORT INFORMATION
  Report Type: 
  Country: None (occurrence: None)
  Receive Date: 20091229
  Receipt Date: 20090914
  Transmission Date: 20100525
  Serious: Yes (Other)
  Sender: FDA-Public Use
  Company Number: TR-PFIZER INC-2009311023

PATIENT
  Age: 66 Year
  Sex: Female

DRUGS (3)
  1. AROMASIN [Suspect]
     Indication: BREAST CANCER METASTATIC
     Dosage: UNK
  2. IXABEPILONE [Suspect]
     Indication: BREAST CANCER METASTATIC
     Dosage: 40 MG/M2, EVERY 3 WEEKS
     Dates: start: 20080601, end: 20090501
  3. XELODA [Suspect]
     Indication: BREAST CANCER METASTATIC
     Dosage: UNK
     Dates: end: 20090501

REACTIONS (4)
  - BONE MARROW FAILURE [None]
  - FEBRILE NEUTROPENIA [None]
  - NEUROPATHY PERIPHERAL [None]
  - PLEURAL EFFUSION [None]
